FAERS Safety Report 9360505 (Version 1)
Quarter: 2013Q2

REPORT INFORMATION
  Report Type: Spontaneous
  Country: US (occurrence: US)
  Receive Date: 20130621
  Receipt Date: 20130621
  Transmission Date: 20140414
  Serious: No
  Sender: FDA-Public Use
  Company Number: US-US-EMD SERONO, INC.-7058470

PATIENT
  Age: 49 Year
  Sex: Female

DRUGS (4)
  1. REBIF [Suspect]
     Indication: PRODUCT USED FOR UNKNOWN INDICATION
     Route: 058
     Dates: start: 20071116
  2. REBIF [Suspect]
  3. LEFLUNOMIDE [Suspect]
     Indication: RHEUMATOID ARTHRITIS
  4. SULFASALAZINE [Suspect]
     Indication: RHEUMATOID ARTHRITIS

REACTIONS (7)
  - Alopecia [Recovering/Resolving]
  - Mean cell haemoglobin concentration decreased [Recovering/Resolving]
  - White blood cell count decreased [Recovering/Resolving]
  - Neutrophil count decreased [Recovering/Resolving]
  - Lymphocyte count increased [Recovering/Resolving]
  - Platelet count decreased [Recovering/Resolving]
  - Injection site bruising [Unknown]
